FAERS Safety Report 16508433 (Version 2)
Quarter: 2020Q2

REPORT INFORMATION
  Report Type: Spontaneous
  Country: US (occurrence: US)
  Receive Date: 20190702
  Receipt Date: 20200629
  Transmission Date: 20200713
  Serious: No
  Sender: FDA-Public Use
  Company Number: US-ROCHE-2297885

PATIENT
  Age: 65 Year
  Sex: Female

DRUGS (2)
  1. XELODA [Suspect]
     Active Substance: CAPECITABINE
     Indication: PRODUCT USED FOR UNKNOWN INDICATION
     Dosage: TAB 500MG
     Route: 065
     Dates: start: 201903
  2. XELODA [Suspect]
     Active Substance: CAPECITABINE
     Route: 065
     Dates: start: 20190401

REACTIONS (7)
  - Off label use [Unknown]
  - Rash [Unknown]
  - Palmar-plantar erythrodysaesthesia syndrome [Unknown]
  - Intentional product use issue [Unknown]
  - Peripheral swelling [Unknown]
  - Constipation [Unknown]
  - Vision blurred [Unknown]

NARRATIVE: CASE EVENT DATE: 20190401
